FAERS Safety Report 10584190 (Version 1)
Quarter: 2014Q4

REPORT INFORMATION
  Report Type: Spontaneous
  Country: US (occurrence: US)
  Receive Date: 20141114
  Receipt Date: 20141114
  Transmission Date: 20150529
  Serious: Yes (Hospitalization, Other)
  Sender: FDA-Public Use
  Company Number: US-PFIZER INC-2014311530

PATIENT
  Age: 56 Year
  Sex: Male
  Weight: 86 kg

DRUGS (6)
  1. VICODIN [Concomitant]
     Active Substance: ACETAMINOPHEN\HYDROCODONE BITARTRATE
  2. NORCO [Concomitant]
     Active Substance: ACETAMINOPHEN\HYDROCODONE BITARTRATE
  3. CELEBREX [Suspect]
     Active Substance: CELECOXIB
     Indication: ARTHRITIS
     Dosage: 200 MG, 2X/DAY
     Route: 048
     Dates: start: 1991
  4. ABILIFY [Concomitant]
     Active Substance: ARIPIPRAZOLE
  5. LISINOPRIL. [Concomitant]
     Active Substance: LISINOPRIL
     Dosage: 20-25 MG, 1X/DAY
     Route: 048
  6. ZOCOR [Concomitant]
     Active Substance: SIMVASTATIN

REACTIONS (17)
  - Pain in extremity [Unknown]
  - Flank pain [Unknown]
  - Type 2 diabetes mellitus [Unknown]
  - Back disorder [Unknown]
  - Back injury [Unknown]
  - Renal cancer [Unknown]
  - Leukaemia [Unknown]
  - Pain [Unknown]
  - Blood cholesterol increased [Unknown]
  - Thrombosis [Unknown]
  - Intentional product misuse [Unknown]
  - Retinal detachment [Unknown]
  - Cervical vertebral fracture [Unknown]
  - Weight decreased [Unknown]
  - Hypertension [Unknown]
  - Sleep disorder [Unknown]
  - Gait disturbance [Unknown]

NARRATIVE: CASE EVENT DATE: 2006
